FAERS Safety Report 10046233 (Version 1)
Quarter: 2014Q1

REPORT INFORMATION
  Report Type: Spontaneous
  Country: US (occurrence: US)
  Receive Date: 20140331
  Receipt Date: 20140331
  Transmission Date: 20141002
  Serious: Yes (Other)
  Sender: FDA-Public Use
  Company Number: US-MERCK-1403USA013233

PATIENT
  Sex: Female

DRUGS (1)
  1. JANUVIA [Suspect]
     Dosage: UNK
     Route: 048

REACTIONS (3)
  - Renal cancer [Recovering/Resolving]
  - Nephrectomy [Recovering/Resolving]
  - Bladder disorder [Unknown]
